FAERS Safety Report 8473508-X (Version None)
Quarter: 2012Q2

REPORT INFORMATION
  Report Type: 
  Country: None (occurrence: None)
  Receive Date: 20120622
  Receipt Date: 20120622
  Transmission Date: 20120825
  Serious: Yes (Other)
  Sender: FDA-Public Use
  Company Number: None

PATIENT
  Sex: Female

DRUGS (4)
  1. CYMBALTA [Suspect]
     Indication: DEPRESSION
     Dosage: 60 MG ONCE A DAY PO
     Route: 048
  2. -HYRODCODON [Concomitant]
  3. SYNTHROID [Concomitant]
  4. -CLONZEPAN [Concomitant]

REACTIONS (4)
  - PARAESTHESIA [None]
  - PRURITUS [None]
  - BLISTER [None]
  - STAPHYLOCOCCAL INFECTION [None]
